FAERS Safety Report 24709598 (Version 2)
Quarter: 2024Q4

REPORT INFORMATION
  Report Type: Spontaneous
  Country: DK (occurrence: DK)
  Receive Date: 20241209
  Receipt Date: 20241231
  Transmission Date: 20250114
  Serious: Yes (Other)
  Sender: NOVO NORDISK
  Company Number: DK-NOVOPROD-1330505

PATIENT
  Age: 49 Year
  Sex: Male
  Weight: 95 kg

DRUGS (3)
  1. WEGOVY [Suspect]
     Active Substance: SEMAGLUTIDE
     Indication: Obesity
     Dosage: 1.7 MG, QW
     Route: 058
     Dates: start: 20240212, end: 20241118
  2. XARELTO [Concomitant]
     Active Substance: RIVAROXABAN
     Dosage: 20 MG, QD
  3. XARELTO [Concomitant]
     Active Substance: RIVAROXABAN
     Indication: Thrombosis
     Dosage: 15 MG, BID (15 MG MORNING AND EVENING FOR THREE WEEKS)
     Dates: start: 20241029

REACTIONS (1)
  - Optic ischaemic neuropathy [Not Recovered/Not Resolved]
